FAERS Safety Report 4393372-8 (Version None)
Quarter: 2004Q3

REPORT INFORMATION
  Report Type: 
  Country: None (occurrence: None)
  Receive Date: 20040701
  Receipt Date: 20040623
  Transmission Date: 20050211
  Serious: Yes (Other)
  Sender: FDA-Public Use
  Company Number: STA-AE-04-016

PATIENT
  Sex: Male
  Weight: 4.6 kg

DRUGS (2)
  1. FRUSEMIDE (UNK) [Suspect]
     Indication: HEART DISEASE CONGENITAL
     Dosage: 1 MG/KG PER DAY
  2. DIAZOXIDE [Suspect]
     Indication: HEART DISEASE CONGENITAL
     Dosage: 5 MG/KG/DAY

REACTIONS (2)
  - HYPERGLYCAEMIA [None]
  - HYPOGLYCAEMIA [None]
